FAERS Safety Report 14823735 (Version 1)
Quarter: 2018Q2

REPORT INFORMATION
  Report Type: Spontaneous
  Country: US (occurrence: US)
  Receive Date: 20180428
  Receipt Date: 20180428
  Transmission Date: 20180711
  Serious: Yes (Other)
  Sender: FDA-Public Use
  Company Number: US-JNJFOC-20180418028

PATIENT
  Age: 82 Year
  Sex: Male

DRUGS (9)
  1. IMBRUVICA [Suspect]
     Active Substance: IBRUTINIB
     Indication: CHRONIC LYMPHOCYTIC LEUKAEMIA
     Route: 048
     Dates: start: 20160621
  2. MIRTAZAPINE. [Concomitant]
     Active Substance: MIRTAZAPINE
  3. LISINOPRIL. [Concomitant]
     Active Substance: LISINOPRIL
  4. WARFARIN [Concomitant]
     Active Substance: WARFARIN
  5. AMIODARONE [Concomitant]
     Active Substance: AMIODARONE
  6. TAMSULOSIN [Concomitant]
     Active Substance: TAMSULOSIN
  7. PANTOPRAZOLE [Concomitant]
     Active Substance: PANTOPRAZOLE
  8. METOPROLOL. [Concomitant]
     Active Substance: METOPROLOL
  9. NITROGLYCERIN. [Concomitant]
     Active Substance: NITROGLYCERIN

REACTIONS (3)
  - Incorrect dose administered [Unknown]
  - Off label use [Unknown]
  - Skin cancer [Unknown]

NARRATIVE: CASE EVENT DATE: 20160621
